FAERS Safety Report 9393149 (Version 2)
Quarter: 2013Q3

REPORT INFORMATION
  Report Type: Report from Study
  Country: DE (occurrence: DE)
  Receive Date: 20130710
  Receipt Date: 20130828
  Transmission Date: 20140515
  Serious: Yes (Other)
  Sender: FDA-Public Use
  Company Number: DE-ABBOTT-13P-062-1115355-00

PATIENT
  Age: 38 Year
  Sex: Male
  Weight: 100 kg

DRUGS (5)
  1. HUMIRA [Suspect]
     Indication: PSORIATIC ARTHROPATHY
     Route: 058
     Dates: start: 200607, end: 201304
  2. HUMIRA [Suspect]
     Dates: start: 20130724
  3. IBUPROFEN [Concomitant]
     Indication: PSORIATIC ARTHROPATHY
     Dates: start: 201303
  4. ARCOXIA [Concomitant]
     Indication: PSORIATIC ARTHROPATHY
     Dates: start: 201302, end: 201303
  5. TARGIN [Concomitant]
     Indication: PSORIATIC ARTHROPATHY
     Dates: start: 201306

REACTIONS (3)
  - Arthropathy [Not Recovered/Not Resolved]
  - Arthritis [Not Recovered/Not Resolved]
  - Off label use [Recovered/Resolved]
